FAERS Safety Report 7686668-5 (Version None)
Quarter: 2011Q3

REPORT INFORMATION
  Report Type: 
  Country: None (occurrence: None)
  Receive Date: 20110816
  Receipt Date: 20101230
  Transmission Date: 20111222
  Serious: No
  Sender: FDA-Public Use
  Company Number: US-BAYER-2011-001778

PATIENT
  Age: 22 Year
  Sex: Female

DRUGS (1)
  1. MIRENA [Suspect]
     Indication: CONTRACEPTION
     Dosage: 20 MCG/24HR, CONT
     Route: 015
     Dates: start: 20100101, end: 20110224

REACTIONS (7)
  - AMENORRHOEA [None]
  - SKIN REACTION [None]
  - MENSTRUAL DISORDER [None]
  - RASH [None]
  - ACNE [None]
  - VAGINAL HAEMORRHAGE [None]
  - NAUSEA [None]
